FAERS Safety Report 11735187 (Version 1)
Quarter: 2015Q4

REPORT INFORMATION
  Report Type: Spontaneous
  Country: US (occurrence: US)
  Receive Date: 20151113
  Receipt Date: 20151113
  Transmission Date: 20160304
  Serious: Yes (Other)
  Sender: FDA-Public Use
  Company Number: US-BEH-2015055625

PATIENT
  Sex: Female
  Weight: 94 kg

DRUGS (25)
  1. LIDOCAINE PATCH [Concomitant]
     Active Substance: LIDOCAINE
  2. TERBINAFINE. [Concomitant]
     Active Substance: TERBINAFINE
  3. PREDNISOLONE. [Concomitant]
     Active Substance: PREDNISOLONE
  4. LUNESTA [Concomitant]
     Active Substance: ESZOPICLONE
  5. TRAZODONE [Concomitant]
     Active Substance: TRAZODONE HYDROCHLORIDE
  6. VITAMIN D3 [Concomitant]
     Active Substance: CHOLECALCIFEROL
  7. PROBIOTIC [Concomitant]
     Active Substance: PROBIOTICS NOS
  8. HIZENTRA [Suspect]
     Active Substance: HUMAN IMMUNOGLOBULIN G
     Indication: IMMUNODEFICIENCY COMMON VARIABLE
     Dosage: 4 GM 20 ML VIALS
     Route: 058
  9. FENTANYL TRANSDERMAL SYSTEM [Concomitant]
     Active Substance: FENTANYL
  10. GABAPENTIN. [Concomitant]
     Active Substance: GABAPENTIN
  11. BUDESONIDE. [Concomitant]
     Active Substance: BUDESONIDE
  12. LIDOCAINE/PRILOCAINE [Concomitant]
  13. MULTIPLE VITAMINS FOR WOMEN [Concomitant]
  14. ACETAMINOPHEN. [Concomitant]
     Active Substance: ACETAMINOPHEN
  15. ZINC OXIDE. [Concomitant]
     Active Substance: ZINC OXIDE
  16. MELATONIN [Concomitant]
     Active Substance: MELATONIN
  17. TRIPLE ANTIBIOTIC [Concomitant]
     Active Substance: BACITRACIN ZINC\NEOMYCIN\NEOMYCIN SULFATE\POLYMYXIN B SULFATE
  18. TRIPLE OMEGA [Concomitant]
  19. EXFORGE [Concomitant]
     Active Substance: AMLODIPINE BESYLATE\VALSARTAN
  20. VOLTAREN [Concomitant]
     Active Substance: DICLOFENAC SODIUM
  21. DIPHENHYDRAMINE. [Concomitant]
     Active Substance: DIPHENHYDRAMINE
  22. EPIPEN [Concomitant]
     Active Substance: EPINEPHRINE
  23. LEVOFLOXACIN. [Concomitant]
     Active Substance: LEVOFLOXACIN
  24. ALBUTEROL SULFATE. [Concomitant]
     Active Substance: ALBUTEROL SULFATE
  25. VIGAMOX [Concomitant]
     Active Substance: MOXIFLOXACIN HYDROCHLORIDE

REACTIONS (1)
  - Respiratory tract infection [Unknown]
